FAERS Safety Report 8012001-5 (Version None)
Quarter: 2011Q4

REPORT INFORMATION
  Report Type: 
  Country: None (occurrence: None)
  Receive Date: 20111228
  Receipt Date: 20111221
  Transmission Date: 20120403
  Serious: Yes (Death, Hospitalization)
  Sender: FDA-Public Use
  Company Number: FR-GLAXOSMITHKLINE-B0763286A

PATIENT
  Age: 64 Year
  Sex: Male
  Weight: 93 kg

DRUGS (4)
  1. TOPOTECAN [Suspect]
     Indication: LUNG NEOPLASM MALIGNANT
     Dates: start: 20110616, end: 20110802
  2. CHEMOTHERAPY [Concomitant]
     Indication: LUNG NEOPLASM MALIGNANT
  3. CARBOPLATIN [Concomitant]
     Indication: LUNG NEOPLASM MALIGNANT
  4. ETOPOSIDE [Concomitant]
     Indication: LUNG NEOPLASM MALIGNANT

REACTIONS (3)
  - PANCYTOPENIA [None]
  - PYREXIA [None]
  - DEATH [None]
